FAERS Safety Report 12365517 (Version 1)
Quarter: 2016Q2

REPORT INFORMATION
  Report Type: Spontaneous
  Country: IT (occurrence: IT)
  Receive Date: 20160512
  Receipt Date: 20160512
  Transmission Date: 20160815
  Serious: Yes (Other)
  Sender: FDA-Public Use
  Company Number: PHHY2016IT063636

PATIENT
  Age: 34 Year
  Sex: Female
  Weight: 63 kg

DRUGS (5)
  1. LANSOPRAZOL [Concomitant]
     Active Substance: LANSOPRAZOLE
     Indication: PRODUCT USED FOR UNKNOWN INDICATION
     Dosage: 40 MG, UNK
     Route: 048
  2. DECADRON #1 [Concomitant]
     Indication: PRODUCT USED FOR UNKNOWN INDICATION
     Dosage: 20 MG
     Route: 042
  3. DOCETAXEL. [Suspect]
     Active Substance: DOCETAXEL
     Indication: ENDOMETRIAL SARCOMA
     Dosage: 120 MG, CYCLIC
     Route: 042
     Dates: start: 20160316
  4. GEMZAR [Suspect]
     Active Substance: GEMCITABINE HYDROCHLORIDE
     Indication: ENDOMETRIAL SARCOMA
     Dosage: 1700 MG, CYCLIC
     Route: 042
     Dates: start: 20160316
  5. ZOFRAN [Concomitant]
     Active Substance: ONDANSETRON HYDROCHLORIDE
     Indication: PRODUCT USED FOR UNKNOWN INDICATION
     Dosage: 8 MG
     Route: 042

REACTIONS (2)
  - Neutropenia [Unknown]
  - Oral discomfort [Unknown]

NARRATIVE: CASE EVENT DATE: 20160405
